FAERS Safety Report 4450559-3 (Version None)
Quarter: 2004Q3

REPORT INFORMATION
  Report Type: 
  Country: None (occurrence: None)
  Receive Date: 20040914
  Receipt Date: 20040830
  Transmission Date: 20050211
  Serious: No
  Sender: FDA-Public Use
  Company Number: 04P-163-0272400-00

PATIENT
  Sex: Male

DRUGS (3)
  1. TARKA [Suspect]
     Indication: HYPERTENSION
     Dates: start: 20040101, end: 20040101
  2. GLUCOPHAGE [Concomitant]
  3. ATORVASTATIN CALCIUM [Concomitant]

REACTIONS (4)
  - CEREBROVASCULAR ACCIDENT [None]
  - DIZZINESS [None]
  - FALL [None]
  - HYPOTENSION [None]
